FAERS Safety Report 18348471 (Version 1)
Quarter: 2020Q4

REPORT INFORMATION
  Report Type: Spontaneous
  Country: IT (occurrence: IT)
  Receive Date: 20201006
  Receipt Date: 20201006
  Transmission Date: 20210114
  Serious: Yes (Other)
  Sender: FDA-Public Use
  Company Number: IT-TEVA-2020-IT-1835297

PATIENT
  Age: 62 Year
  Sex: Male

DRUGS (4)
  1. DEXTRAN SULPHATE [Suspect]
     Active Substance: DEXTRAN
     Indication: HYPERLIPIDAEMIA
     Dosage: THE LIPOPROTEIN APHERESIS [LIPOSORBER] WAS PERFORMED EVERY TWO WEEKS TREATING 5000 ML OF PLASMA P...
     Route: 065
  2. ASPIRIN/CLOPIDOGREL [Concomitant]
     Active Substance: ASPIRIN\CLOPIDOGREL
     Indication: PRODUCT USED FOR UNKNOWN INDICATION
     Dosage: 100/75MG ONCE A DAY
     Route: 065
  3. BISOPROLOL [Suspect]
     Active Substance: BISOPROLOL
     Indication: STRESS CARDIOMYOPATHY
     Dosage: 1.25 MILLIGRAM DAILY;
     Route: 065
  4. ATORVASTATIN [Concomitant]
     Active Substance: ATORVASTATIN
     Indication: HYPERLIPIDAEMIA
     Dosage: 20 MILLIGRAM DAILY;
     Route: 065

REACTIONS (2)
  - Malaise [Recovered/Resolved]
  - Presyncope [Recovered/Resolved]
